FAERS Safety Report 13749513 (Version 1)
Quarter: 2017Q3

REPORT INFORMATION
  Report Type: Spontaneous
  Country: US (occurrence: MX)
  Receive Date: 20170713
  Receipt Date: 20170713
  Transmission Date: 20171127
  Serious: Yes (Hospitalization, Other)
  Sender: FDA-Public Use
  Company Number: US-PFIZER INC-2017303983

PATIENT
  Age: 66 Year
  Sex: Male
  Weight: 74.84 kg

DRUGS (3)
  1. CELECOXIB. [Suspect]
     Active Substance: CELECOXIB
     Indication: JOINT DISLOCATION
     Dosage: 200 MG, 2X/DAY, (ONE CAPSULE EVERY 12 HOURS FOR 10 DAYS)
     Route: 048
     Dates: start: 20170322, end: 20170401
  2. TRAMADOL. [Concomitant]
     Active Substance: TRAMADOL
     Indication: ARTHRALGIA
     Dosage: 100 MG, 2X/DAY
     Route: 048
  3. TRAMADOL. [Concomitant]
     Active Substance: TRAMADOL
     Indication: ARTHRITIS

REACTIONS (11)
  - Gastrointestinal injury [Recovered/Resolved]
  - Pallor [Recovered/Resolved]
  - Fall [Recovered/Resolved]
  - Product use in unapproved indication [Unknown]
  - Faeces discoloured [Recovered/Resolved]
  - Dizziness [Recovered/Resolved]
  - Internal haemorrhage [Recovered/Resolved]
  - Balance disorder [Unknown]
  - Red blood cell abnormality [Recovered/Resolved]
  - Syncope [Recovered/Resolved]
  - Drug dispensing error [Unknown]

NARRATIVE: CASE EVENT DATE: 20170322
